FAERS Safety Report 7872294-1 (Version None)
Quarter: 2011Q4

REPORT INFORMATION
  Report Type: 
  Country: None (occurrence: None)
  Receive Date: 20111030
  Receipt Date: 20110317
  Transmission Date: 20120403
  Serious: No
  Sender: FDA-Public Use
  Company Number: US-AMGEN-USASP2011014799

PATIENT
  Age: 45 Year
  Sex: Female

DRUGS (1)
  1. ENBREL [Suspect]
     Indication: RHEUMATOID ARTHRITIS
     Dosage: 50 MG, 2 TIMES/WK
     Dates: start: 20101223

REACTIONS (6)
  - RHINORRHOEA [None]
  - COUGH [None]
  - JOINT STIFFNESS [None]
  - INFECTION [None]
  - OROPHARYNGEAL PAIN [None]
  - EAR CONGESTION [None]
